FAERS Safety Report 25272089 (Version 1)
Quarter: 2025Q2

REPORT INFORMATION
  Report Type: Spontaneous
  Country: US (occurrence: US)
  Receive Date: 20250506
  Receipt Date: 20250506
  Transmission Date: 20250716
  Serious: No
  Sender: ROCHE
  Company Number: US-ROCHE-10000269120

PATIENT
  Age: 83 Year
  Sex: Female

DRUGS (2)
  1. XOLAIR [Suspect]
     Active Substance: OMALIZUMAB
     Indication: Asthma
     Dosage: 1 OF 300 MG AUTO INJECTOR WITH 1 OF 75MG AUTO INJECTOR
     Route: 058
     Dates: start: 20250418
  2. XOLAIR [Suspect]
     Active Substance: OMALIZUMAB
     Dosage: 1 OF 300 MG AUTO INJECTOR WITH 1 OF 75MG AUTO INJECTOR
     Route: 058
     Dates: start: 20250418

REACTIONS (4)
  - Accidental exposure to product [Unknown]
  - Off label use [Unknown]
  - Device defective [Unknown]
  - No adverse event [Unknown]

NARRATIVE: CASE EVENT DATE: 20250418
